FAERS Safety Report 6706418-6 (Version None)
Quarter: 2010Q2

REPORT INFORMATION
  Report Type: 
  Country: None (occurrence: None)
  Receive Date: 20100503
  Receipt Date: 20100423
  Transmission Date: 20101027
  Serious: Yes (Hospitalization)
  Sender: FDA-Public Use
  Company Number: PHHO2010FR06188

PATIENT
  Sex: Male
  Weight: 81.5 kg

DRUGS (2)
  1. MYCOPHENOLIC ACID [Suspect]
     Indication: RENAL TRANSPLANT
     Dosage: 2150 MG DLAILY
     Route: 048
     Dates: start: 20100401
  2. NEORAL [Suspect]
     Indication: RENAL TRANSPLANT
     Dosage: 550 MG DAILY
     Route: 048
     Dates: start: 20100401

REACTIONS (2)
  - PAIN IN EXTREMITY [None]
  - PHLEBITIS [None]
